FAERS Safety Report 11629478 (Version 1)
Quarter: 2015Q4

REPORT INFORMATION
  Report Type: Spontaneous
  Country: US (occurrence: None)
  Receive Date: 20151013
  Receipt Date: 20151013
  Transmission Date: 20160304
  Serious: Yes (Other)
  Sender: FDA-Public Use
  Company Number: None

PATIENT
  Age: 80 Year
  Sex: Male

DRUGS (1)
  1. ZYTIGA [Suspect]
     Active Substance: ABIRATERONE ACETATE
     Indication: PROSTATE CANCER
     Route: 048
     Dates: start: 20150616

REACTIONS (5)
  - Asthenia [None]
  - Decreased appetite [None]
  - Condition aggravated [None]
  - Fatigue [None]
  - Activities of daily living impaired [None]

NARRATIVE: CASE EVENT DATE: 20151011
